FAERS Safety Report 24621384 (Version 1)
Quarter: 2024Q4

REPORT INFORMATION
  Report Type: Report from Study
  Country: JP (occurrence: JP)
  Receive Date: 20241114
  Receipt Date: 20241114
  Transmission Date: 20250115
  Serious: Yes (Life-Threatening, Hospitalization, Other)
  Sender: PFIZER
  Company Number: JP-TAKEDA-2024TJP003343

PATIENT
  Age: 76 Year
  Sex: Male
  Weight: 56.1 kg

DRUGS (10)
  1. BRENTUXIMAB VEDOTIN [Suspect]
     Active Substance: BRENTUXIMAB VEDOTIN
     Indication: Adult T-cell lymphoma/leukaemia
     Dosage: 1.8 MILLIGRAM/KILOGRAM
     Route: 065
     Dates: start: 20221031
  2. CYCLOPHOSPHAMIDE [Suspect]
     Active Substance: CYCLOPHOSPHAMIDE
     Indication: Adult T-cell lymphoma/leukaemia
     Dosage: 750 MILLIGRAM/SQ. METER
     Route: 065
     Dates: start: 20221031, end: 20221129
  3. CYCLOPHOSPHAMIDE [Suspect]
     Active Substance: CYCLOPHOSPHAMIDE
     Dosage: 650 MILLIGRAM/SQ. METER
     Route: 065
     Dates: start: 20221130, end: 20230306
  4. CYCLOPHOSPHAMIDE [Suspect]
     Active Substance: CYCLOPHOSPHAMIDE
     Dosage: 400 MILLIGRAM/SQ. METER
     Route: 065
     Dates: start: 20230307
  5. DOXORUBICIN HYDROCHLORIDE [Suspect]
     Active Substance: DOXORUBICIN HYDROCHLORIDE
     Indication: Adult T-cell lymphoma/leukaemia
     Dosage: 50 MILLIGRAM/SQ. METER
     Route: 065
     Dates: start: 20221031, end: 20221129
  6. DOXORUBICIN HYDROCHLORIDE [Suspect]
     Active Substance: DOXORUBICIN HYDROCHLORIDE
     Dosage: 40 MILLIGRAM/SQ. METER
     Route: 065
     Dates: start: 20221130, end: 20230306
  7. DOXORUBICIN HYDROCHLORIDE [Suspect]
     Active Substance: DOXORUBICIN HYDROCHLORIDE
     Dosage: 30 MILLIGRAM/SQ. METER
     Route: 065
     Dates: start: 20230307
  8. PREDNISOLONE [Suspect]
     Active Substance: PREDNISOLONE
     Indication: Adult T-cell lymphoma/leukaemia
     Dosage: 400 MILLIGRAM
     Route: 065
     Dates: start: 20221031, end: 20221129
  9. PREDNISOLONE [Suspect]
     Active Substance: PREDNISOLONE
     Dosage: 325 MILLIGRAM
     Route: 065
     Dates: start: 20221130, end: 20230306
  10. PREDNISOLONE [Suspect]
     Active Substance: PREDNISOLONE
     Dosage: 225 MILLIGRAM
     Route: 065
     Dates: start: 20230307

REACTIONS (6)
  - Neutropenia [Recovering/Resolving]
  - Platelet count decreased [Recovering/Resolving]
  - Pneumonia bacterial [Recovered/Resolved]
  - Cytomegalovirus gastrointestinal infection [Recovered/Resolved]
  - Neuropathy peripheral [Recovering/Resolving]
  - Herpes zoster [Recovered/Resolved with Sequelae]

NARRATIVE: CASE EVENT DATE: 20221109
